FAERS Safety Report 8298622-3 (Version None)
Quarter: 2012Q2

REPORT INFORMATION
  Report Type: 
  Country: None (occurrence: None)
  Receive Date: 20120419
  Receipt Date: 20120405
  Transmission Date: 20120825
  Serious: Yes (Hospitalization)
  Sender: FDA-Public Use
  Company Number: JP-MYLANLABS-2012S1007570

PATIENT
  Age: 14 Year
  Sex: Female

DRUGS (6)
  1. MIDAZOLAM [Suspect]
     Indication: SEDATION
     Route: 065
  2. KETAMINE HCL [Suspect]
     Indication: SEDATION
     Route: 065
  3. CLOBAZAM [Concomitant]
     Indication: EPILEPSY
     Route: 065
  4. VALPROIC ACID [Concomitant]
     Indication: EPILEPSY
     Route: 065
  5. LAMOTRGINE [Suspect]
     Indication: CONVULSION
     Route: 065
  6. TOPIRAMATE [Concomitant]
     Indication: EPILEPSY
     Route: 065

REACTIONS (4)
  - CYTOMEGALOVIRUS INFECTION [None]
  - DRUG RASH WITH EOSINOPHILIA AND SYSTEMIC SYMPTOMS [None]
  - HUMAN HERPESVIRUS 6 INFECTION [None]
  - EPSTEIN-BARR VIRUS INFECTION [None]
